FAERS Safety Report 10486658 (Version 2)
Quarter: 2017Q3

REPORT INFORMATION
  Report Type: Spontaneous
  Country: US (occurrence: US)
  Receive Date: 20141001
  Receipt Date: 20170728
  Transmission Date: 20171127
  Serious: Yes (Hospitalization)
  Sender: FDA-Public Use
  Company Number: US-ELI_LILLY_AND_COMPANY-US201409002699

PATIENT
  Sex: Female
  Weight: 99.79 kg

DRUGS (9)
  1. DILANTIN [Suspect]
     Active Substance: PHENYTOIN
     Indication: PRODUCT USED FOR UNKNOWN INDICATION
     Dosage: UNK, UNKNOWN
     Route: 065
  2. LEVOTHYROXIN [Concomitant]
     Active Substance: LEVOTHYROXINE
     Indication: THYROID DISORDER
     Dosage: 0.05 MG, EACH MORNING
     Route: 065
     Dates: start: 201602
  3. CYMBALTA [Suspect]
     Active Substance: DULOXETINE HYDROCHLORIDE
     Indication: FIBROMYALGIA
     Dosage: 60 MG, QD
     Route: 065
     Dates: start: 20140820
  4. PROAIR HFA [Concomitant]
     Active Substance: ALBUTEROL SULFATE
     Indication: ASTHMA
     Dosage: 2 DF, EVERY 6 HRS
     Route: 065
     Dates: start: 2016
  5. CYMBALTA [Suspect]
     Active Substance: DULOXETINE HYDROCHLORIDE
     Indication: DEPRESSION
     Dosage: 60 MG, BID
     Route: 065
     Dates: start: 2012, end: 20140820
  6. TIZANIDINE. [Concomitant]
     Active Substance: TIZANIDINE
     Indication: MUSCLE SPASMS
     Dosage: 4 MG, TID
     Route: 065
     Dates: start: 2006
  7. CYMBALTA [Suspect]
     Active Substance: DULOXETINE HYDROCHLORIDE
     Dosage: UNK UNK, UNKNOWN
     Route: 065
  8. TIZANIDINE. [Concomitant]
     Active Substance: TIZANIDINE
     Indication: SCIATIC NERVE INJURY
  9. PROAIR HFA [Concomitant]
     Active Substance: ALBUTEROL SULFATE
     Indication: CHRONIC RESPIRATORY DISEASE

REACTIONS (21)
  - Irritability [Unknown]
  - Feeling abnormal [Unknown]
  - Exostosis [Unknown]
  - Drug level increased [Unknown]
  - Intentional product misuse [Unknown]
  - Anger [Unknown]
  - Intervertebral disc protrusion [Unknown]
  - Fall [Unknown]
  - Drug withdrawal syndrome [Unknown]
  - Depression [Unknown]
  - Speech disorder [Unknown]
  - Neck mass [Unknown]
  - Back disorder [Unknown]
  - Crying [Unknown]
  - Gait disturbance [Unknown]
  - Anxiety [Unknown]
  - Toxicity to various agents [Unknown]
  - Arthropathy [Unknown]
  - Panic attack [Unknown]
  - Decreased appetite [Unknown]
  - Memory impairment [Unknown]

NARRATIVE: CASE EVENT DATE: 2016
